FAERS Safety Report 15336905 (Version 1)
Quarter: 2018Q3

REPORT INFORMATION
  Report Type: Report from Study
  Country: None (occurrence: RO)
  Receive Date: 20180831
  Receipt Date: 20180831
  Transmission Date: 20181010
  Serious: Yes (Hospitalization, Other)
  Sender: FDA-Public Use
  Company Number: RO-ABBVIE-18S-135-2465681-00

PATIENT
  Age: 72 Year
  Sex: Male

DRUGS (4)
  1. FOKUSIN [Concomitant]
     Active Substance: TAMSULOSIN
     Indication: ADENOMA BENIGN
     Route: 048
  2. CARVEDILOL. [Concomitant]
     Active Substance: CARVEDILOL
     Indication: HYPERTENSION
     Route: 048
  3. RIVOTRIL [Concomitant]
     Active Substance: CLONAZEPAM
     Indication: INSOMNIA
     Route: 048
  4. DUODOPA [Suspect]
     Active Substance: CARBIDOPA\LEVODOPA
     Indication: PARKINSON^S DISEASE
     Dosage: MD=3.00 CD=5.90 ED=4.30 NRED=3;
     Route: 050
     Dates: start: 20141126

REACTIONS (4)
  - Clostridium difficile colitis [Recovered/Resolved]
  - Dehydration [Recovered/Resolved]
  - Malnutrition [Recovering/Resolving]
  - Clostridium difficile colitis [Recovered/Resolved]

NARRATIVE: CASE EVENT DATE: 20180713
